FAERS Safety Report 22012148 (Version 1)
Quarter: 2023Q1

REPORT INFORMATION
  Report Type: Report from Study
  Country: US (occurrence: US)
  Receive Date: 20230220
  Receipt Date: 20230220
  Transmission Date: 20230418
  Serious: No
  Sender: FDA-Public Use
  Company Number: US-AURINIA PHARMACEUTICALS INC.-AUR-002368

PATIENT
  Age: 24 Year
  Sex: Female

DRUGS (2)
  1. LUPKYNIS [Suspect]
     Active Substance: VOCLOSPORIN
     Indication: Lupus nephritis
     Dosage: 23.7 MILLIGRAM, BID
     Route: 048
     Dates: start: 20220809
  2. LUPKYNIS [Suspect]
     Active Substance: VOCLOSPORIN
     Dosage: 23.7 MILLIGRAM, BID
     Route: 048
     Dates: start: 20221007

REACTIONS (6)
  - Increased upper airway secretion [Not Recovered/Not Resolved]
  - Productive cough [Not Recovered/Not Resolved]
  - Malaise [Unknown]
  - Oropharyngeal pain [Unknown]
  - Ear pain [Unknown]
  - Eustachian tube dysfunction [Unknown]

NARRATIVE: CASE EVENT DATE: 20220926
